FAERS Safety Report 6773609-8 (Version None)
Quarter: 2010Q2

REPORT INFORMATION
  Report Type: 
  Country: None (occurrence: None)
  Receive Date: 20100614
  Receipt Date: 20100608
  Transmission Date: 20101027
  Serious: Yes (Hospitalization)
  Sender: FDA-Public Use
  Company Number: 2010SP020239

PATIENT
  Sex: Male
  Weight: 100 kg

DRUGS (10)
  1. TEMODAL [Suspect]
     Indication: GLIOBLASTOMA
     Dosage: 35 MG;TID;PO ; 200 MG; PO
     Route: 048
     Dates: start: 20091215, end: 20100423
  2. TEMODAL [Suspect]
     Indication: GLIOBLASTOMA
     Dosage: 35 MG;TID;PO ; 200 MG; PO
     Route: 048
     Dates: start: 20091215, end: 20100423
  3. IRINOTECAN HCL [Suspect]
     Indication: GLIOBLASTOMA
     Dosage: 200 MG;QOW; IV
     Route: 042
     Dates: start: 20091222, end: 20100419
  4. ENALAPRIL (CON.) [Concomitant]
  5. BISOPROLOL (CON.) [Concomitant]
  6. KEPPRA (CON.) [Concomitant]
  7. DOXAZOSIN (CON.) [Concomitant]
  8. DEXAMETHASONE (CON.) [Concomitant]
  9. SIMVASTATIN (CON.) [Concomitant]
  10. METFORMIN (CON.) [Concomitant]

REACTIONS (15)
  - ANAEMIA [None]
  - ASTHENIA [None]
  - BACTERAEMIA [None]
  - BLOOD DISORDER [None]
  - CEREBRAL ISCHAEMIA [None]
  - CHILLS [None]
  - COGNITIVE DISORDER [None]
  - CONVULSION [None]
  - COUGH [None]
  - DIARRHOEA [None]
  - DISEASE PROGRESSION [None]
  - FEBRILE NEUTROPENIA [None]
  - LEUKOPENIA [None]
  - STAPHYLOCOCCAL INFECTION [None]
  - URINARY TRACT INFECTION [None]
